FAERS Safety Report 4977111-5 (Version None)
Quarter: 2006Q2

REPORT INFORMATION
  Report Type: 
  Country: None (occurrence: None)
  Receive Date: 20060412
  Receipt Date: 20060331
  Transmission Date: 20061013
  Serious: Yes (Other)
  Sender: FDA-Public Use
  Company Number: GXKR2006US01844

PATIENT
  Age: 61 Year
  Sex: Male

DRUGS (1)
  1. WARFARIN (NGX)(WARFARIN) [Suspect]

REACTIONS (7)
  - CALCINOSIS [None]
  - CALCIPHYLAXIS [None]
  - PENILE INFECTION [None]
  - PENIS DISORDER [None]
  - RASH [None]
  - SKIN LESION [None]
  - TENDERNESS [None]
